FAERS Safety Report 9540876 (Version 2)
Quarter: 2013Q4

REPORT INFORMATION
  Report Type: Report from Study
  Country: NL (occurrence: NL)
  Receive Date: 20130920
  Receipt Date: 20131011
  Transmission Date: 20140711
  Serious: Yes (Death)
  Sender: FDA-Public Use
  Company Number: PHHY2013NL105066

PATIENT
  Age: 79 Year
  Sex: Male

DRUGS (3)
  1. ACLASTA [Suspect]
     Indication: OSTEOPOROSIS
     Dosage: 5 MG, ONCE PER 52 WEEKS
     Route: 042
     Dates: start: 20100916
  2. ACLASTA [Suspect]
     Dosage: 5 MG, ONCE PER 52 WEEKS
     Route: 042
     Dates: start: 20110922
  3. ACLASTA [Suspect]
     Dosage: 5 MG, ONCE PER 52 WEEKS
     Route: 042
     Dates: start: 20120928

REACTIONS (1)
  - Death [Fatal]
